FAERS Safety Report 26012068 (Version 1)
Quarter: 2025Q4

REPORT INFORMATION
  Report Type: Spontaneous
  Country: US (occurrence: US)
  Receive Date: 20251107
  Receipt Date: 20251107
  Transmission Date: 20260117
  Serious: Yes (Other)
  Sender: GLAUKOS
  Company Number: US-GLK-000699

PATIENT
  Sex: Female

DRUGS (1)
  1. PHOTREXA VISCOUS [Suspect]
     Active Substance: RIBOFLAVIN 5^-PHOSPHATE SODIUM
     Indication: Keratoconus
     Dosage: RIGHT EYE
     Route: 047
     Dates: start: 20250428, end: 20250428

REACTIONS (2)
  - Corneal scar [Not Recovered/Not Resolved]
  - Visual impairment [Not Recovered/Not Resolved]
